FAERS Safety Report 9168833 (Version 1)
Quarter: 2013Q1

REPORT INFORMATION
  Report Type: Spontaneous
  Country: GB (occurrence: None)
  Receive Date: 20130308
  Receipt Date: 20130308
  Transmission Date: 20140127
  Serious: Yes (Other)
  Sender: FDA-Public Use
  Company Number: 1616331

PATIENT
  Sex: Male

DRUGS (2)
  1. METHOTREXATE [Suspect]
     Indication: PRODUCT USED FOR UNKNOWN INDICATION
  2. USTEKINUMAB [Suspect]
     Indication: PSORIASIS

REACTIONS (4)
  - Drug interaction [None]
  - Psoriasis [None]
  - Haematochezia [None]
  - Blood urine present [None]
